FAERS Safety Report 10678047 (Version 6)
Quarter: 2015Q2

REPORT INFORMATION
  Report Type: Spontaneous
  Country: US (occurrence: US)
  Receive Date: 20141229
  Receipt Date: 20150417
  Transmission Date: 20150821
  Serious: Yes (Congenital Anomaly)
  Sender: FDA-Public Use
  Company Number: US-ELI_LILLY_AND_COMPANY-US201412008624

PATIENT
  Sex: Female
  Weight: 2.14 kg

DRUGS (18)
  1. METHYLDIOXOTETRAHYDROPYRIMIDINE SULFONISONICO [Concomitant]
     Route: 064
  2. CLONAZEPAM. [Concomitant]
     Active Substance: CLONAZEPAM
     Route: 064
  3. PRENATAL                           /00231801/ [Concomitant]
     Route: 064
  4. PROZAC [Suspect]
     Active Substance: FLUOXETINE HYDROCHLORIDE
     Indication: PRODUCT USED FOR UNKNOWN INDICATION
     Dosage: 1 DF, UNKNOWN
     Route: 064
  5. METOPROLOL TARTRATE. [Concomitant]
     Active Substance: METOPROLOL TARTRATE
     Indication: BLOOD PRESSURE
     Route: 064
  6. LISINOPRIL. [Concomitant]
     Active Substance: LISINOPRIL
     Indication: BLOOD PRESSURE
     Route: 064
  7. LISINOPRIL. [Concomitant]
     Active Substance: LISINOPRIL
     Indication: BLOOD PRESSURE
     Route: 064
  8. PRENATAL                           /00231801/ [Concomitant]
     Route: 064
  9. WELLBUTRIN [Concomitant]
     Active Substance: BUPROPION HYDROCHLORIDE
     Dosage: UNK
     Route: 064
     Dates: end: 20101201
  10. METHYLDIOXOTETRAHYDROPYRIMIDINE SULFONISONICO [Concomitant]
     Route: 064
  11. INSULIN DETEMIR [Concomitant]
     Active Substance: INSULIN DETEMIR
     Route: 064
  12. INSULIN DETEMIR [Concomitant]
     Active Substance: INSULIN DETEMIR
     Route: 064
  13. WELLBUTRIN [Concomitant]
     Active Substance: BUPROPION HYDROCHLORIDE
     Dosage: UNK
     Route: 064
     Dates: end: 20101201
  14. CLONIDINE. [Concomitant]
     Active Substance: CLONIDINE
     Dosage: UNK
     Route: 064
     Dates: end: 20101201
  15. CLONAZEPAM. [Concomitant]
     Active Substance: CLONAZEPAM
     Route: 064
  16. CLONIDINE. [Concomitant]
     Active Substance: CLONIDINE
     Dosage: UNK
     Route: 064
     Dates: end: 20101201
  17. PROZAC [Suspect]
     Active Substance: FLUOXETINE HYDROCHLORIDE
     Indication: PRODUCT USED FOR UNKNOWN INDICATION
     Dosage: 1 DF, UNKNOWN
     Route: 064
  18. METOPROLOL TARTRATE. [Concomitant]
     Active Substance: METOPROLOL TARTRATE
     Indication: BLOOD PRESSURE
     Route: 064

REACTIONS (5)
  - Microcephaly [Unknown]
  - Small for dates baby [Unknown]
  - Foetal exposure during pregnancy [Unknown]
  - Craniosynostosis [Unknown]
  - Headache [Unknown]
